FAERS Safety Report 21982653 (Version 2)
Quarter: 2023Q1

REPORT INFORMATION
  Report Type: Other
  Country: US (occurrence: None)
  Receive Date: 20230213
  Receipt Date: 20230214
  Transmission Date: 20230418
  Serious: No
  Sender: FDA-Public Use
  Company Number: US-ROCHE-3279955

PATIENT
  Age: 65 Year
  Sex: Female
  Weight: 68.100 kg

DRUGS (12)
  1. OCREVUS [Suspect]
     Active Substance: OCRELIZUMAB
     Indication: Relapsing-remitting multiple sclerosis
     Route: 042
     Dates: start: 2019
  2. ASPIRIN [Concomitant]
     Active Substance: ASPIRIN
  3. LEVOTHYROXINE [Concomitant]
     Active Substance: LEVOTHYROXINE
  4. METOPROLOL [Concomitant]
     Active Substance: METOPROLOL
  5. MODAFINIL [Concomitant]
     Active Substance: MODAFINIL
  6. MONTELUKAST [Concomitant]
     Active Substance: MONTELUKAST SODIUM
  7. NITROFURANTOIN [Concomitant]
     Active Substance: NITROFURANTOIN
  8. OLMESARTAN [Concomitant]
     Active Substance: OLMESARTAN
  9. OXCARBAZEPINE [Concomitant]
     Active Substance: OXCARBAZEPINE
  10. PRIMIDONE [Concomitant]
     Active Substance: PRIMIDONE
  11. TIZANIDINE [Concomitant]
     Active Substance: TIZANIDINE
  12. VIBERZI [Concomitant]
     Active Substance: ELUXADOLINE

REACTIONS (8)
  - Fall [Unknown]
  - Hypertension [Not Recovered/Not Resolved]
  - Blood cholesterol increased [Not Recovered/Not Resolved]
  - Blood triglycerides increased [Not Recovered/Not Resolved]
  - Depression [Not Recovered/Not Resolved]
  - COVID-19 [Unknown]
  - Viral infection [Recovered/Resolved]
  - Off label use [Unknown]
